FAERS Safety Report 15365585 (Version 3)
Quarter: 2019Q1

REPORT INFORMATION
  Report Type: Spontaneous
  Country: AT (occurrence: AT)
  Receive Date: 20180910
  Receipt Date: 20190215
  Transmission Date: 20190417
  Serious: Yes (Hospitalization, Other)
  Sender: FDA-Public Use
  Company Number: AT-AMGEN-AUTSP2018124092

PATIENT
  Age: 61 Year
  Sex: Female
  Weight: 61 kg

DRUGS (2)
  1. XGEVA [Suspect]
     Active Substance: DENOSUMAB
     Indication: COLON CANCER
     Dosage: 120 MG, QMO
     Route: 065
     Dates: start: 201802
  2. AVASTIN [Concomitant]
     Active Substance: BEVACIZUMAB
     Indication: COLON CANCER
     Dosage: UNK

REACTIONS (3)
  - Osteonecrosis of jaw [Unknown]
  - Impaired healing [Unknown]
  - Tooth extraction [Unknown]

NARRATIVE: CASE EVENT DATE: 20181106
